FAERS Safety Report 15931644 (Version 1)
Quarter: 2019Q1

REPORT INFORMATION
  Report Type: Spontaneous
  Country: CH (occurrence: CH)
  Receive Date: 20190207
  Receipt Date: 20190207
  Transmission Date: 20190417
  Serious: Yes (Hospitalization)
  Sender: FDA-Public Use
  Company Number: CH-009507513-1902CHE000945

PATIENT
  Age: 63 Year
  Sex: Female

DRUGS (4)
  1. PRIMPERAN [Concomitant]
     Active Substance: METOCLOPRAMIDE HYDROCHLORIDE
     Indication: PROPHYLAXIS
     Dosage: 10 MG/DAY
     Route: 065
     Dates: start: 20020523, end: 20020603
  2. TEGRETOL [Suspect]
     Active Substance: CARBAMAZEPINE
     Indication: PROPHYLAXIS
     Dosage: 600 MG/DAY
     Route: 048
     Dates: start: 20020430, end: 20020603
  3. TEMOZOLOMIDE. [Suspect]
     Active Substance: TEMOZOLOMIDE
     Indication: GLIOBLASTOMA
     Dosage: 170 MG/DAY
     Route: 048
     Dates: start: 20020523, end: 20020603
  4. JARSIN [Concomitant]
     Active Substance: ST. JOHN^S WORT
     Indication: AFFECTIVE DISORDER
     Dosage: 600 MG/DAY
     Route: 065
     Dates: end: 20020603

REACTIONS (8)
  - Rash [Recovering/Resolving]
  - Hepatocellular injury [Recovering/Resolving]
  - Eosinophilia [Recovering/Resolving]
  - Lymphadenopathy [Recovering/Resolving]
  - Stevens-Johnson syndrome [Recovering/Resolving]
  - Drug reaction with eosinophilia and systemic symptoms [Recovering/Resolving]
  - Pruritus [Recovering/Resolving]
  - Transaminases increased [Recovering/Resolving]

NARRATIVE: CASE EVENT DATE: 20020601
